FAERS Safety Report 26066088 (Version 1)
Quarter: 2025Q4

REPORT INFORMATION
  Report Type: Spontaneous
  Country: US (occurrence: US)
  Receive Date: 20251119
  Receipt Date: 20251119
  Transmission Date: 20260118
  Serious: Yes (Other)
  Sender: COOPERSURGICAL
  Company Number: US-COOPERSURGICAL, INC.-2025CPS002418

PATIENT
  Age: 29 Year
  Sex: Female
  Weight: 72.562 kg

DRUGS (1)
  1. PARAGARD T 380A [Suspect]
     Active Substance: COPPER
     Dosage: UNK
     Route: 015
     Dates: start: 20111121

REACTIONS (17)
  - Surgery [Recovered/Resolved]
  - Device breakage [Not Recovered/Not Resolved]
  - Foreign body in urogenital tract [Not Recovered/Not Resolved]
  - Complication of device removal [Not Recovered/Not Resolved]
  - Embedded device [Not Recovered/Not Resolved]
  - Uterine perforation [Not Recovered/Not Resolved]
  - Device dislocation [Not Recovered/Not Resolved]
  - Emotional distress [Unknown]
  - Bartholin^s cyst [Not Recovered/Not Resolved]
  - Cervical friability [Recovered/Resolved]
  - Discomfort [Unknown]
  - Pain [Recovered/Resolved]
  - Bacterial vaginosis [Unknown]
  - Pelvic pain [Unknown]
  - Pelvic discomfort [Unknown]
  - Dyspareunia [Unknown]
  - Device expulsion [Recovered/Resolved]

NARRATIVE: CASE EVENT DATE: 20150724
